FAERS Safety Report 17839121 (Version 1)
Quarter: 2020Q2

REPORT INFORMATION
  Report Type: Spontaneous
  Country: US (occurrence: US)
  Receive Date: 20200528
  Receipt Date: 20200528
  Transmission Date: 20200714
  Serious: Yes (Other)
  Sender: FDA-Public Use
  Company Number: None

PATIENT
  Age: 48 Year
  Sex: Male
  Weight: 89.1 kg

DRUGS (1)
  1. NULEAF NATURALS CBD [Suspect]
     Active Substance: CANNABIDIOL\HERBALS
     Indication: INSOMNIA
     Route: 060

REACTIONS (1)
  - Product label issue [None]

NARRATIVE: CASE EVENT DATE: 20200501
